FAERS Safety Report 14150640 (Version 1)
Quarter: 2017Q4

REPORT INFORMATION
  Report Type: Report from Study
  Country: JP (occurrence: JP)
  Receive Date: 20171101
  Receipt Date: 20171101
  Transmission Date: 20180321
  Serious: Yes (Other)
  Sender: FDA-Public Use
  Company Number: JP-MYLANLABS-2017M1068070

PATIENT
  Age: 72 Year
  Sex: Male

DRUGS (2)
  1. GIMERACIL;OTERACIL;TEGAFUR [Suspect]
     Active Substance: GIMERACIL\OTERACIL\TEGAFUR
     Indication: GASTRIC CANCER STAGE IV
     Dosage: 2 DOSES PER DAY FOR 14 DAYS CONTINUOUSLY, THEN 7 DAYS OFF (8 CYCLES)
     Route: 065
  2. OXALIPLATIN. [Suspect]
     Active Substance: OXALIPLATIN
     Indication: GASTRIC CANCER STAGE IV
     Dosage: 130 MG/M2 ON THE FIRST DAY OF EACH CYCLE, 8 CYCLES
     Route: 042

REACTIONS (1)
  - Peripheral nerve injury [Unknown]
